FAERS Safety Report 9938154 (Version 3)
Quarter: 2014Q1

REPORT INFORMATION
  Report Type: Spontaneous
  Country: DE (occurrence: DE)
  Receive Date: 20140303
  Receipt Date: 20140307
  Transmission Date: 20141002
  Serious: Yes (Life-Threatening, Other)
  Sender: FDA-Public Use
  Company Number: DE-BAYER-2013-154867

PATIENT
  Age: 57 Year
  Sex: Male
  Weight: 36 kg

DRUGS (14)
  1. NEXAVAR [Suspect]
     Indication: HEPATOCELLULAR CARCINOMA
     Dosage: 200 MG, BID
     Route: 048
  2. NEXAVAR [Suspect]
     Indication: HEPATOCELLULAR CARCINOMA
     Dosage: UNK
     Dates: start: 201011, end: 201012
  3. NEXAVAR [Suspect]
     Indication: HEPATOCELLULAR CARCINOMA
     Dosage: REDUCED DOSE
     Dates: start: 201101, end: 201312
  4. ASS 100 [Concomitant]
     Indication: CARDIAC FAILURE
     Dosage: UNK
     Dates: start: 201311
  5. METOPROLOL [Concomitant]
     Dosage: UNK
  6. RAMIPRIL [Concomitant]
     Indication: CARDIAC FAILURE
     Dosage: UNK
  7. TORASEMID [Concomitant]
     Indication: CARDIAC FAILURE
     Dosage: 5 UNK, UNK
     Dates: start: 201311
  8. SIMVASTATIN [Concomitant]
     Indication: HYPERLIPIDAEMIA
     Dosage: UNK
     Dates: start: 201311
  9. PANTOPRAZOLE [Concomitant]
     Dosage: UNK
     Dates: start: 201007
  10. FORMOTEROL [Concomitant]
     Dosage: 1 PUFF(S), BID
     Dates: start: 201311
  11. TIOTROPIUM BROMIDE [Concomitant]
  12. COLECALCIFEROL [Concomitant]
     Dosage: 20000 IU, UNK
  13. PLAVIX [Concomitant]
  14. ACETYLSALICYLIC ACID [Concomitant]

REACTIONS (3)
  - Coronary artery disease [Not Recovered/Not Resolved]
  - Left ventricular dysfunction [Not Recovered/Not Resolved]
  - Palmar-plantar erythrodysaesthesia syndrome [None]
